FAERS Safety Report 17044922 (Version 3)
Quarter: 2020Q1

REPORT INFORMATION
  Report Type: Spontaneous
  Country: FR (occurrence: FR)
  Receive Date: 20191118
  Receipt Date: 20200130
  Transmission Date: 20200409
  Serious: Yes (Congenital Anomaly, Other)
  Sender: FDA-Public Use
  Company Number: FR-NAPPMUNDI-USA-2019-0149056

PATIENT

DRUGS (15)
  1. CEFTRIAXONE. [Suspect]
     Active Substance: CEFTRIAXONE
     Indication: EXPOSURE DURING PREGNANCY
     Dosage: UNK
     Route: 064
  2. PECFENT [Suspect]
     Active Substance: FENTANYL CITRATE
     Indication: EXPOSURE DURING PREGNANCY
     Dosage: UNK
     Route: 064
  3. ETOPOSIDE. [Suspect]
     Active Substance: ETOPOSIDE
     Indication: EXPOSURE DURING PREGNANCY
     Dosage: UNK
     Route: 064
  4. OXYCODONE HYDROCHLORIDE (SIMILAR TO NDA 22-272) [Suspect]
     Active Substance: OXYCODONE HYDROCHLORIDE
     Indication: EXPOSURE DURING PREGNANCY
     Dosage: UNK
     Route: 064
  5. TAZOCILLINE [Suspect]
     Active Substance: PIPERACILLIN SODIUM\TAZOBACTAM SODIUM
     Indication: EXPOSURE DURING PREGNANCY
     Dosage: UNK
     Route: 064
  6. RASBURICASE [Suspect]
     Active Substance: RASBURICASE
     Indication: EXPOSURE DURING PREGNANCY
     Dosage: UNK
     Route: 064
  7. METOCLOPRAMIDE. [Suspect]
     Active Substance: METOCLOPRAMIDE
     Indication: EXPOSURE DURING PREGNANCY
     Dosage: UNK
     Route: 064
  8. G-LASTA [Suspect]
     Active Substance: PEGFILGRASTIM
     Indication: EXPOSURE DURING PREGNANCY
     Dosage: UNK
     Route: 064
  9. PANTOPRAZOLE [Suspect]
     Active Substance: PANTOPRAZOLE
     Indication: EXPOSURE DURING PREGNANCY
     Dosage: UNK
     Route: 064
  10. LENOGRASTIM [Suspect]
     Active Substance: LENOGRASTIM
     Indication: EXPOSURE DURING PREGNANCY
     Dosage: UNK
     Route: 064
  11. APREPITANT. [Suspect]
     Active Substance: APREPITANT
     Indication: EXPOSURE DURING PREGNANCY
     Dosage: UNK
     Route: 064
  12. PACLITAXEL. [Suspect]
     Active Substance: PACLITAXEL
     Indication: EXPOSURE DURING PREGNANCY
     Dosage: UNK
     Route: 064
  13. AMIKACIN. [Suspect]
     Active Substance: AMIKACIN
     Indication: EXPOSURE DURING PREGNANCY
     Dosage: UNK
     Route: 064
  14. CARBOPLATIN. [Suspect]
     Active Substance: CARBOPLATIN
     Indication: EXPOSURE DURING PREGNANCY
     Dosage: UNK
     Route: 064
  15. PHLOROGLUCINOL [Suspect]
     Active Substance: PHLOROGLUCINOL
     Indication: EXPOSURE DURING PREGNANCY
     Route: 064

REACTIONS (2)
  - Cardiac septal defect [Unknown]
  - Foetal exposure during pregnancy [Unknown]
